FAERS Safety Report 21503737 (Version 3)
Quarter: 2022Q4

REPORT INFORMATION
  Report Type: Report from Study
  Country: EG (occurrence: EG)
  Receive Date: 20221025
  Receipt Date: 20221128
  Transmission Date: 20230113
  Serious: Yes (Other)
  Sender: FDA-Public Use
  Company Number: EG-NOVARTISPH-NVSC2022EG237300

PATIENT
  Age: 42 Year
  Sex: Female

DRUGS (2)
  1. AFINITOR [Suspect]
     Active Substance: EVEROLIMUS
     Indication: Hepatic cancer
     Dosage: 2 DOSAGE FORM, BID
     Route: 048
     Dates: start: 20221014
  2. XANAX [Concomitant]
     Active Substance: ALPRAZOLAM
     Indication: Sleep disorder
     Dosage: 1 DOSAGE FORM, QD
     Route: 048
     Dates: start: 20221001, end: 20221017

REACTIONS (9)
  - Feeling of body temperature change [Not Recovered/Not Resolved]
  - Pollakiuria [Not Recovered/Not Resolved]
  - Face oedema [Not Recovered/Not Resolved]
  - Polyuria [Not Recovered/Not Resolved]
  - Sleep disorder [Not Recovered/Not Resolved]
  - Diabetes mellitus [Not Recovered/Not Resolved]
  - Heavy menstrual bleeding [Not Recovered/Not Resolved]
  - Mouth ulceration [Not Recovered/Not Resolved]
  - Product storage error [Unknown]

NARRATIVE: CASE EVENT DATE: 20221015
